FAERS Safety Report 25078227 (Version 1)
Quarter: 2025Q1

REPORT INFORMATION
  Report Type: Spontaneous
  Country: US (occurrence: None)
  Receive Date: 20250313
  Receipt Date: 20250313
  Transmission Date: 20250409
  Serious: Yes (unspecified)
  Sender: FDA-CTU
  Company Number: None

PATIENT
  Age: 75 Year
  Sex: Female
  Weight: 90.3 kg

DRUGS (2)
  1. FERRIC DERISOMALTOSE [Suspect]
     Active Substance: FERRIC DERISOMALTOSE
     Indication: Iron deficiency anaemia
     Route: 042
     Dates: start: 20250313, end: 20250313
  2. normal saline 500ml [Concomitant]
     Dates: start: 20250313

REACTIONS (4)
  - Nausea [None]
  - Chest discomfort [None]
  - Hot flush [None]
  - Infusion related reaction [None]

NARRATIVE: CASE EVENT DATE: 20250313
